FAERS Safety Report 7360341-5 (Version None)
Quarter: 2011Q1

REPORT INFORMATION
  Report Type: 
  Country: None (occurrence: None)
  Receive Date: 20110318
  Receipt Date: 20110309
  Transmission Date: 20110831
  Serious: Yes (Hospitalization, Other)
  Sender: FDA-Public Use
  Company Number: US-JNJFOC-20110305301

PATIENT
  Sex: Female

DRUGS (14)
  1. VICODIN [Concomitant]
     Indication: BREAKTHROUGH PAIN
     Dosage: 5/500 TABLET AS NEEDE
     Route: 048
  2. CYMBALTA [Concomitant]
     Indication: DEPRESSION
     Route: 048
  3. DIAZEPAM [Concomitant]
     Indication: NERVOUSNESS
     Route: 048
  4. WELLABUTRIN [Concomitant]
     Indication: SLEEP DISORDER
     Route: 048
  5. LISINOPRIL [Concomitant]
     Indication: BLOOD PRESSURE
     Route: 048
  6. FENTANYL-100 [Suspect]
     Route: 062
  7. METFORMIN HCL [Concomitant]
     Indication: ELECTROLYTE IMBALANCE
     Route: 048
  8. SPIRIVA [Concomitant]
     Indication: PANIC ATTACK
     Route: 055
  9. LYRICA [Concomitant]
     Indication: FIBROMYALGIA
     Route: 048
  10. WELLABUTRIN [Concomitant]
     Indication: DEPRESSION
     Route: 048
  11. SPIRIVA [Concomitant]
     Indication: RESPIRATORY DISORDER
     Route: 055
  12. FENTANYL-100 [Suspect]
     Indication: ABDOMINAL PAIN
     Route: 062
  13. FLEXERIL [Concomitant]
     Indication: MUSCLE SPASMS
     Route: 048
  14. CYMBALTA [Concomitant]
     Indication: SLEEP DISORDER
     Route: 048

REACTIONS (7)
  - WRONG TECHNIQUE IN DRUG USAGE PROCESS [None]
  - PULMONARY ARTERIAL HYPERTENSION [None]
  - CARDIAC FAILURE CONGESTIVE [None]
  - CARDIOMYOPATHY [None]
  - PRODUCT ADHESION ISSUE [None]
  - DYSPNOEA [None]
  - BLOOD CHOLESTEROL INCREASED [None]
